FAERS Safety Report 8996199 (Version 1)
Quarter: 2013Q1

REPORT INFORMATION
  Report Type: Spontaneous
  Country: US (occurrence: US)
  Receive Date: 20130103
  Receipt Date: 20130103
  Transmission Date: 20140127
  Serious: Yes (Death)
  Sender: FDA-Public Use
  Company Number: PHHY2012US120711

PATIENT
  Sex: Female

DRUGS (1)
  1. ASCRIPTIN BUFFERED CAPS UNKNOWN FORMULA [Suspect]

REACTIONS (1)
  - Death [Fatal]
